FAERS Safety Report 5338824-9 (Version None)
Quarter: 2007Q2

REPORT INFORMATION
  Report Type: 
  Country: None (occurrence: None)
  Receive Date: 20070328
  Receipt Date: 20060524
  Transmission Date: 20071010
  Serious: Yes (Other)
  Sender: FDA-Public Use
  Company Number: K200600105

PATIENT
  Age: 70 Year
  Sex: Male
  Weight: 113.4 kg

DRUGS (16)
  1. ALTACE [Suspect]
     Indication: HYPERTENSION
     Dosage: 2.5 MG. QD, ORAL
     Route: 048
  2. COLACE(DOCUSATE SODIUM) 200MG [Suspect]
     Indication: FAECES HARD
     Dosage: 200 MG, QD
  3. ALEVE [Suspect]
     Indication: ARTHRITIS
     Dosage: 220 MG, QD, ORAL
     Route: 048
     Dates: start: 20051112
  4. ECOTRIN (ACETYLSALICYLIC ACID), 325 MG [Concomitant]
  5. TENORMIN (ATENOLOL), 100 MG [Concomitant]
  6. PLAVIX [Concomitant]
  7. ZETIA (EZETIMIBE) (EZETIMIBE), 10 MG [Concomitant]
  8. TRICOR (FENOFIBRATE), 145 MG [Concomitant]
  9. LASIX [Concomitant]
  10. NEURONTIN (GABAPENTIN) (GABAPENTIN), 900 MG [Concomitant]
  11. GLUCOTROL (GLIPIZIDE), 10 MG [Concomitant]
  12. PREVACID (LANSOPRAZOLE)M 15 MG [Concomitant]
  13. DITROPAN XL (OXYBUTYNIN HYDROCHLORIDE), 10 MG [Concomitant]
  14. ZOCOR [Concomitant]
  15. AZULFIDINE (SULFASALAZINE), 2000 MG [Concomitant]
  16. PERCOCET (OXYCODONE HYDROCHLORIDE, PARACETAMOL), 20/1300 MG [Concomitant]

REACTIONS (1)
  - HYPERSENSITIVITY [None]
